FAERS Safety Report 10246194 (Version 1)
Quarter: 2014Q2

REPORT INFORMATION
  Report Type: Spontaneous
  Country: US (occurrence: None)
  Receive Date: 20140617
  Receipt Date: 20140617
  Transmission Date: 20141212
  Serious: Yes (Hospitalization)
  Sender: FDA-Public Use
  Company Number: QSC-2014-0282

PATIENT
  Age: 72 Year
  Sex: Male

DRUGS (4)
  1. H.P. ACTHAR GEL [Suspect]
     Indication: NEPHROTIC SYNDROME
     Dates: start: 20140417
  2. SIMVASTATIN (SIMVASTATIN) [Concomitant]
  3. OMEPRAZOLE (OMEPRAZOLE) [Concomitant]
  4. LASIX (FUROSEMIDE) [Concomitant]

REACTIONS (7)
  - Renal failure acute [None]
  - Hypokalaemia [None]
  - Metabolic alkalosis [None]
  - Dyspnoea [None]
  - Injection site bruising [None]
  - Pain in extremity [None]
  - Oedema [None]
